FAERS Safety Report 4423819-X (Version None)
Quarter: 2004Q3

REPORT INFORMATION
  Report Type: 
  Country: None (occurrence: None)
  Receive Date: 20040715
  Receipt Date: 20030529
  Transmission Date: 20050211
  Serious: Yes (Life-Threatening, Hospitalization)
  Sender: FDA-Public Use
  Company Number: HQWYE421902JUN03

PATIENT
  Age: 72 Year
  Sex: Male
  Weight: 82.63 kg

DRUGS (8)
  1. MYLOTARG [Suspect]
     Indication: ACUTE MYELOID LEUKAEMIA
     Dosage: 9 MG/M~2 1X PER 1 DAY, INTRAVENOUS
     Route: 042
     Dates: start: 20030514, end: 20030514
  2. TYLENOL [Suspect]
     Indication: PROPHYLAXIS
     Dosage: DOSE AND DATES OF THERAPY WERE NOT
  3. BENADRYL [Concomitant]
  4. IMDUR [Concomitant]
  5. DIFLUCAN [Concomitant]
  6. ALLOPURINOL [Concomitant]
  7. LISINOPRIL [Concomitant]
  8. DIGOXIN [Concomitant]

REACTIONS (4)
  - ASCITES [None]
  - BLOOD BILIRUBIN INCREASED [None]
  - HEPATIC ENZYME INCREASED [None]
  - PAIN [None]
